FAERS Safety Report 7764378-3 (Version None)
Quarter: 2011Q3

REPORT INFORMATION
  Report Type: 
  Country: None (occurrence: None)
  Receive Date: 20110921
  Receipt Date: 20110914
  Transmission Date: 20111222
  Serious: Yes (Other)
  Sender: FDA-Public Use
  Company Number: GB-SANOFI-AVENTIS-2011SA060093

PATIENT
  Sex: Male

DRUGS (1)
  1. RIFAMPIN AND ISONIAZID [Suspect]
     Route: 065

REACTIONS (2)
  - BILIARY CIRRHOSIS PRIMARY [None]
  - LIVER FUNCTION TEST ABNORMAL [None]
